FAERS Safety Report 7134588-7 (Version None)
Quarter: 2010Q4

REPORT INFORMATION
  Report Type: 
  Country: None (occurrence: None)
  Receive Date: 20101203
  Receipt Date: 20101122
  Transmission Date: 20110411
  Serious: Yes (Hospitalization)
  Sender: FDA-Public Use
  Company Number: PHHY2010FR80013

PATIENT
  Sex: Female

DRUGS (6)
  1. VOLTARENE LP [Suspect]
     Indication: GOUT
     Dosage: 75 MG, QD
     Route: 048
     Dates: end: 20100719
  2. CAPTOPRIL [Interacting]
     Indication: HYPERTENSION
     Dosage: 25 MG, QD
     Route: 048
     Dates: end: 20100719
  3. KALEORID LP [Interacting]
     Indication: HYPERTENSION
     Dosage: 1000 MG, QD
     Dates: end: 20100719
  4. ALDALIX [Interacting]
     Indication: HYPERTENSION
     Dosage: 50/20 MG QD
     Route: 048
     Dates: end: 20100719
  5. IPERTEN [Suspect]
     Indication: HYPERTENSION
     Dosage: 10 MG, QD
     Route: 048
     Dates: end: 20100719
  6. KARDEGIC [Concomitant]
     Indication: THROMBOSIS PROPHYLAXIS
     Dosage: 75 MG, QD
     Route: 048

REACTIONS (7)
  - BLOOD CREATININE INCREASED [None]
  - BLOOD UREA INCREASED [None]
  - CREATININE RENAL CLEARANCE DECREASED [None]
  - DEHYDRATION [None]
  - DIARRHOEA [None]
  - HYPERKALAEMIA [None]
  - RENAL FAILURE [None]
